FAERS Safety Report 9663718 (Version 1)
Quarter: 2013Q4

REPORT INFORMATION
  Report Type: Spontaneous
  Country: GB (occurrence: GB)
  Receive Date: 20131101
  Receipt Date: 20131101
  Transmission Date: 20140711
  Serious: Yes (Other)
  Sender: FDA-Public Use
  Company Number: PHFR2013GB006076

PATIENT
  Age: 30 Year
  Sex: Female
  Weight: 86 kg

DRUGS (3)
  1. INTERFERON BETA-1B [Suspect]
     Indication: MULTIPLE SCLEROSIS
     Dosage: 8000000 IU, QOD
     Route: 058
     Dates: start: 201111
  2. VITAMIN B12 [Concomitant]
     Dosage: 1 DF, THREE MONTHLY
  3. FOLIC ACID [Concomitant]
     Dosage: 400 UG (STARTED EARLY PREGNANCY)
     Route: 048

REACTIONS (1)
  - Stillbirth [Unknown]
